FAERS Safety Report 8456231-7 (Version None)
Quarter: 2012Q2

REPORT INFORMATION
  Report Type: 
  Country: None (occurrence: None)
  Receive Date: 20120621
  Receipt Date: 20120614
  Transmission Date: 20120825
  Serious: Yes (Other)
  Sender: FDA-Public Use
  Company Number: FR-ABBOTT-12P-056-0946401-00

PATIENT
  Age: 29 Year
  Sex: Male

DRUGS (2)
  1. CREON [Suspect]
     Dosage: 14 CAPSULES DAILY
  2. CREON [Suspect]
     Indication: CYSTIC FIBROSIS
     Dosage: 7 CAPSULES DAILY

REACTIONS (3)
  - GASTROOESOPHAGEAL REFLUX DISEASE [None]
  - WEIGHT DECREASED [None]
  - INTENTIONAL DRUG MISUSE [None]
